FAERS Safety Report 8808637 (Version 2)
Quarter: 2012Q4

REPORT INFORMATION
  Report Type: 
  Country: RS (occurrence: RS)
  Receive Date: 20120926
  Receipt Date: 20121116
  Transmission Date: 20130627
  Serious: Yes (Death)
  Sender: FDA-Public Use
  Company Number: RS-JNJFOC-20120909803

PATIENT
  Age: 28 Year
  Sex: Female

DRUGS (4)
  1. RISPOLEPT CONSTA [Suspect]
     Indication: SCHIZOAFFECTIVE DISORDER
     Route: 030
     Dates: start: 20081118
  2. RISPOLEPT CONSTA [Suspect]
     Indication: SCHIZOAFFECTIVE DISORDER
     Route: 030
     Dates: start: 20120223, end: 20120509
  3. ALPRAZOLAM [Concomitant]
     Route: 065
  4. MAPROTILINE [Concomitant]
     Dosage: occasionally
     Route: 065

REACTIONS (1)
  - Completed suicide [Fatal]
